FAERS Safety Report 11792593 (Version 2)
Quarter: 2015Q4

REPORT INFORMATION
  Report Type: Spontaneous
  Country: US (occurrence: US)
  Receive Date: 20151202
  Receipt Date: 20151209
  Transmission Date: 20160305
  Serious: No
  Sender: FDA-Public Use
  Company Number: US-009507513-1511USA010084

PATIENT
  Age: 30 Year
  Sex: Female
  Weight: 117.91 kg

DRUGS (3)
  1. NEXPLANON [Suspect]
     Active Substance: ETONOGESTREL
     Dosage: 68 MG, IN THE LEFT ARM
     Route: 059
     Dates: start: 20151112, end: 20151113
  2. XANAX [Concomitant]
     Active Substance: ALPRAZOLAM
     Indication: DEPRESSION
  3. NEXPLANON [Suspect]
     Active Substance: ETONOGESTREL
     Dosage: 68 MG, IN THE RIGHT ARM
     Route: 059
     Dates: start: 20151113

REACTIONS (2)
  - Device deployment issue [Unknown]
  - Device expulsion [Recovered/Resolved]

NARRATIVE: CASE EVENT DATE: 201511
